FAERS Safety Report 13202174 (Version 2)
Quarter: 2017Q2

REPORT INFORMATION
  Report Type: Spontaneous
  Country: US (occurrence: US)
  Receive Date: 20170209
  Receipt Date: 20170405
  Transmission Date: 20170830
  Serious: Yes (Hospitalization)
  Sender: FDA-Public Use
  Company Number: US-ASTELLAS-2017US004603

PATIENT
  Age: 50 Year
  Sex: Male

DRUGS (1)
  1. PROGRAF [Suspect]
     Active Substance: TACROLIMUS\TACROLIMUS ANHYDROUS
     Indication: PRODUCT USED FOR UNKNOWN INDICATION
     Route: 048
     Dates: start: 20160606, end: 20170329

REACTIONS (5)
  - Kidney infection [Unknown]
  - Renal disorder [Unknown]
  - Transplant rejection [Unknown]
  - Renal failure [Unknown]
  - Bacterial infection [Unknown]

NARRATIVE: CASE EVENT DATE: 20170116
